FAERS Safety Report 18240977 (Version 1)
Quarter: 2020Q3

REPORT INFORMATION
  Report Type: Spontaneous
  Country: US (occurrence: US)
  Receive Date: 20200905
  Receipt Date: 20200905
  Transmission Date: 20201103
  Serious: Yes (Death)
  Sender: FDA-Public Use
  Company Number: None

PATIENT
  Age: 63 Year
  Sex: Male
  Weight: 69.75 kg

DRUGS (5)
  1. THYROID MEDICATION [Concomitant]
     Active Substance: UNSPECIFIED INGREDIENT
  2. CYMBALTA [Suspect]
     Active Substance: DULOXETINE HYDROCHLORIDE
     Indication: DEPRESSION
     Route: 048
     Dates: start: 20200610, end: 20200624
  3. VITAMIN C [Concomitant]
     Active Substance: ASCORBIC ACID
  4. LORAZEPAM. [Concomitant]
     Active Substance: LORAZEPAM
  5. MINERALS [Concomitant]
     Active Substance: MINERALS

REACTIONS (22)
  - Decreased appetite [None]
  - Weight decreased [None]
  - Violence-related symptom [None]
  - Obsessive thoughts [None]
  - Feeling abnormal [None]
  - Withdrawal syndrome [None]
  - Asphyxia [None]
  - Death of relative [None]
  - Drug ineffective [None]
  - Confusional state [None]
  - Agitation [None]
  - Depressed mood [None]
  - Psychotic disorder [None]
  - Hypoaesthesia [None]
  - Fear [None]
  - Depression [None]
  - Loss of employment [None]
  - Tachyphrenia [None]
  - Feeling of despair [None]
  - Completed suicide [None]
  - Insomnia [None]
  - Nightmare [None]

NARRATIVE: CASE EVENT DATE: 20200610
